FAERS Safety Report 5921458-2 (Version None)
Quarter: 2008Q4

REPORT INFORMATION
  Report Type: 
  Country: None (occurrence: None)
  Receive Date: 20081017
  Receipt Date: 20081013
  Transmission Date: 20090506
  Serious: Yes (Other)
  Sender: FDA-Public Use
  Company Number: GB-RANBAXY-2008RR-18657

PATIENT
  Age: 64 Year
  Sex: Male

DRUGS (13)
  1. NORTRIPTYLINE HCL [Suspect]
     Dosage: UNK
     Route: 048
     Dates: end: 20080627
  2. EFFEXOR [Suspect]
     Dosage: 37.5 MG, QD
     Route: 048
     Dates: end: 20080728
  3. EFFEXOR XR [Suspect]
     Dosage: 150 MG, QD
     Route: 048
     Dates: end: 20080728
  4. ABATACEPT [Concomitant]
  5. ACETYLSALICYLIC ACID SRT [Concomitant]
     Dosage: 75 MG, QD
     Route: 048
  6. ALENDRONIC ACID [Concomitant]
     Dosage: 70 MG, 1/WEEK
  7. AMLODIPINE [Concomitant]
     Dosage: 10 MG, QD
     Route: 048
  8. ATORVASTATIN [Concomitant]
     Dosage: 45 MG, QD
     Route: 048
  9. CIALIS [Concomitant]
  10. PREDNISOLONE [Concomitant]
  11. SULFASALAZINE [Concomitant]
     Dosage: 500 MG, BID
     Dates: start: 20080707
  12. SYMBICORT [Concomitant]
     Dosage: 3 DF, BID
     Route: 055
     Dates: start: 20080707
  13. VALPROATE SODIUM [Concomitant]
     Dosage: 300 MG, BID
     Dates: end: 20080723

REACTIONS (2)
  - MYELODYSPLASTIC SYNDROME [None]
  - THROMBOCYTOPENIA [None]
